FAERS Safety Report 9373063 (Version 2)
Quarter: 2013Q3

REPORT INFORMATION
  Report Type: Spontaneous
  Country: AU (occurrence: None)
  Receive Date: 20130624
  Receipt Date: 20130719
  Transmission Date: 20140515
  Serious: Yes (Disabling)
  Sender: FDA-Public Use
  Company Number: DSU-2013-03476

PATIENT
  Age: 56 Year
  Sex: Female
  Weight: 75 kg

DRUGS (2)
  1. OLMETEC [Suspect]
     Indication: HYPERTENSION
     Route: 048
     Dates: start: 20130326, end: 201304
  2. OLMETEC PLUS [Suspect]
     Indication: HYPERTENSION
     Dosage: 40/25 MG (QD), PER ORAL
     Dates: start: 201304, end: 20130429

REACTIONS (6)
  - Depression [None]
  - Headache [None]
  - Swelling [None]
  - Local swelling [None]
  - Arthralgia [None]
  - Insomnia [None]
